FAERS Safety Report 5077656-6 (Version None)
Quarter: 2006Q3

REPORT INFORMATION
  Report Type: 
  Country: None (occurrence: None)
  Receive Date: 20060807
  Receipt Date: 20060724
  Transmission Date: 20061208
  Serious: Yes (Other)
  Sender: FDA-Public Use
  Company Number: US200607004561

PATIENT
  Sex: Female

DRUGS (9)
  1. HUMULIN R [Suspect]
     Indication: DIABETES MELLITUS
  2. HUMULIN N [Suspect]
     Indication: DIABETES MELLITUS
  3. LANTUS [Concomitant]
  4. COREG [Concomitant]
  5. HUMALOG [Suspect]
     Indication: DIABETES MELLITUS
     Dosage: SLIDING SCALE IN THE MORNING AT 1130
     Dates: start: 20000101
  6. LEVOXYL [Concomitant]
  7. LASIX (FUROSEMIDE, FUROSEMIDE SODIUM) [Concomitant]
  8. FOLIC ACID W/VITAMIN B NOS (FOLIC ACID, VITAMIN  B NOS) [Concomitant]
  9. ASA TABS (ACETYLSALICYLIC ACID) [Concomitant]

REACTIONS (15)
  - BLOOD CALCIUM INCREASED [None]
  - BLOOD POTASSIUM INCREASED [None]
  - BLOOD PRESSURE DECREASED [None]
  - BLOOD PRESSURE INCREASED [None]
  - CARDIAC OPERATION [None]
  - DYSPEPSIA [None]
  - HAEMOGLOBIN DECREASED [None]
  - HEADACHE [None]
  - HYPOTENSION [None]
  - MYOCARDIAL INFARCTION [None]
  - NEUROPATHY [None]
  - OSTEOPOROSIS [None]
  - RENAL DISORDER [None]
  - THERAPY NON-RESPONDER [None]
  - VITAMIN D DECREASED [None]
